FAERS Safety Report 7653624-2 (Version None)
Quarter: 2011Q3

REPORT INFORMATION
  Report Type: 
  Country: None (occurrence: None)
  Receive Date: 20110803
  Receipt Date: 20110803
  Transmission Date: 20111222
  Serious: Yes (Life-Threatening, Hospitalization, Other)
  Sender: FDA-Public Use
  Company Number: None

PATIENT
  Age: 24 Year
  Sex: Male
  Weight: 68.946 kg

DRUGS (1)
  1. OMNICEF [Suspect]
     Indication: TONSILLITIS
     Dosage: 300MG
     Route: 048
     Dates: start: 20110201, end: 20110701

REACTIONS (6)
  - PULMONARY EMBOLISM [None]
  - DISEASE RECURRENCE [None]
  - ENTEROCOLITIS [None]
  - LOSS OF CONSCIOUSNESS [None]
  - TONSILLITIS [None]
  - DEEP VEIN THROMBOSIS [None]
